FAERS Safety Report 7864490-4 (Version None)
Quarter: 2011Q4

REPORT INFORMATION
  Report Type: 
  Country: None (occurrence: None)
  Receive Date: 20111028
  Receipt Date: 20111018
  Transmission Date: 20120403
  Serious: Yes (Hospitalization)
  Sender: FDA-Public Use
  Company Number: JP-CELGENEUS-TAJPN-10-0773

PATIENT
  Sex: Female
  Weight: 42 kg

DRUGS (3)
  1. ZOMETA [Concomitant]
     Indication: BREAST CANCER METASTATIC
     Dosage: 4 MILLIGRAM
     Route: 065
     Dates: start: 20101105
  2. ABRAXANE [Suspect]
     Indication: BREAST CANCER METASTATIC
     Dosage: 235 MILLIGRAM
     Route: 065
     Dates: start: 20101105, end: 20101105
  3. ABRAXANE [Suspect]
     Dosage: 235 MILLIGRAM
     Route: 065
     Dates: start: 20101126, end: 20101126

REACTIONS (1)
  - DECREASED APPETITE [None]
